FAERS Safety Report 5805001-4 (Version None)
Quarter: 2008Q3

REPORT INFORMATION
  Report Type: 
  Country: None (occurrence: None)
  Receive Date: 20080709
  Receipt Date: 20080602
  Transmission Date: 20090109
  Serious: No
  Sender: FDA-Public Use
  Company Number: US-BOEHRINGER INGELHEIM GMBH, GERMANY-2008-BP-08537BP

PATIENT
  Sex: Male

DRUGS (19)
  1. FLOMAX [Suspect]
     Indication: BENIGN PROSTATIC HYPERPLASIA
     Route: 048
     Dates: start: 20060501
  2. FLOMAX [Suspect]
     Indication: MIDDLE INSOMNIA
  3. OMEPRAZOLE [Concomitant]
     Indication: GASTROOESOPHAGEAL REFLUX DISEASE
  4. SIMVASTATIN [Concomitant]
     Indication: BLOOD CHOLESTEROL INCREASED
  5. TOPROL-XL [Concomitant]
     Indication: HYPERTENSION
  6. FLEXERIL [Concomitant]
  7. LEVOXYL [Concomitant]
  8. ASPIRIN [Concomitant]
  9. TRAMADOL HCL [Concomitant]
  10. GABAPENTIN [Concomitant]
  11. CENTRUM [Concomitant]
  12. CALCIUM [Concomitant]
  13. PLAQUENIL [Concomitant]
  14. TOPROL-XL [Concomitant]
  15. ASCORBIC ACID [Concomitant]
  16. NEURONTIN [Concomitant]
  17. FE SULPHATE [Concomitant]
  18. TRAMADOL HCL [Concomitant]
  19. FOSAMAX [Concomitant]

REACTIONS (1)
  - RHINORRHOEA [None]
